FAERS Safety Report 17481880 (Version 1)
Quarter: 2020Q1

REPORT INFORMATION
  Report Type: Report from Study
  Country: IN (occurrence: IN)
  Receive Date: 20200302
  Receipt Date: 20200302
  Transmission Date: 20200409
  Serious: Yes (Hospitalization)
  Sender: FDA-Public Use
  Company Number: IN-ROCHE-2555250

PATIENT

DRUGS (3)
  1. CISPLATIN. [Suspect]
     Active Substance: CISPLATIN
     Indication: CHEMOTHERAPY
     Route: 065
  2. PACLITAXEL. [Suspect]
     Active Substance: PACLITAXEL
     Indication: CHEMOTHERAPY
     Route: 065
  3. BEVACIZUMAB. [Suspect]
     Active Substance: BEVACIZUMAB
     Indication: CHEMOTHERAPY
     Route: 042

REACTIONS (21)
  - Diarrhoea [Unknown]
  - Gastroenteritis [Unknown]
  - Pyrexia [Unknown]
  - Septic shock [Unknown]
  - Hyponatraemia [Unknown]
  - Decreased appetite [Unknown]
  - Pain [Unknown]
  - Asthenia [Unknown]
  - Pancytopenia [Unknown]
  - Vomiting [Unknown]
  - Abdominal pain [Unknown]
  - Dizziness [Unknown]
  - Thrombocytopenia [Unknown]
  - Dysphagia [Unknown]
  - Hypomagnesaemia [Unknown]
  - Neutropenia [Unknown]
  - Anaemia [Unknown]
  - Nausea [Unknown]
  - Hypokalaemia [Unknown]
  - Chills [Unknown]
  - Sepsis [Unknown]
